FAERS Safety Report 10077817 (Version 1)
Quarter: 2014Q2

REPORT INFORMATION
  Report Type: Spontaneous
  Country: DE (occurrence: DE)
  Receive Date: 20140414
  Receipt Date: 20140414
  Transmission Date: 20141212
  Serious: Yes (Death)
  Sender: FDA-Public Use
  Company Number: PHHY2014DE045498

PATIENT
  Sex: 0

DRUGS (10)
  1. CICLOSPORIN [Suspect]
     Indication: STEM CELL TRANSPLANT
  2. MYCOPHENOLATE MOFETIL [Suspect]
     Indication: STEM CELL TRANSPLANT
  3. PREDNISONE [Suspect]
     Indication: STEM CELL TRANSPLANT
  4. IDARUBICIN [Concomitant]
     Indication: CHRONIC MYELOID LEUKAEMIA
  5. MITOXANTRONE [Concomitant]
     Indication: CHRONIC MYELOID LEUKAEMIA
  6. FLUDARABINE [Concomitant]
     Indication: CHRONIC MYELOID LEUKAEMIA
  7. CYTOSINE ARABINOSIDE [Concomitant]
     Indication: CHRONIC MYELOID LEUKAEMIA
  8. BUSULFAN [Concomitant]
     Indication: CHRONIC MYELOID LEUKAEMIA
  9. CYCLOPHOSPHAMIDE [Concomitant]
     Indication: CHRONIC MYELOID LEUKAEMIA
  10. THIOTEPA [Concomitant]
     Indication: CHRONIC MYELOID LEUKAEMIA

REACTIONS (1)
  - Leukaemia recurrent [Fatal]
